FAERS Safety Report 9356604 (Version 1)
Quarter: 2013Q2

REPORT INFORMATION
  Report Type: Spontaneous
  Country: TW (occurrence: None)
  Receive Date: 20130617
  Receipt Date: 20130617
  Transmission Date: 20140414
  Serious: Yes (Hospitalization)
  Sender: FDA-Public Use
  Company Number: IPC201306-000222

PATIENT
  Age: 61 Year
  Sex: Male

DRUGS (1)
  1. METFORMIN HYDROCHLORIDE [Suspect]
     Dosage: OVER 20 GRAMS

REACTIONS (6)
  - Lactic acidosis [None]
  - Shock [None]
  - Renal failure acute [None]
  - Altered state of consciousness [None]
  - Suicide attempt [None]
  - Toxicity to various agents [None]
